FAERS Safety Report 5191251-X (Version None)
Quarter: 2006Q4

REPORT INFORMATION
  Report Type: 
  Country: None (occurrence: None)
  Receive Date: 20061220
  Receipt Date: 20061220
  Transmission Date: 20070319
  Serious: Yes (Hospitalization)
  Sender: FDA-Public Use
  Company Number: None

PATIENT
  Age: 58 Year
  Sex: Female
  Weight: 75.2 kg

DRUGS (6)
  1. CYMBALTA [Suspect]
     Indication: ANTIDEPRESSANT THERAPY
     Dosage: 60 MG PO BID  RECENT
     Route: 048
  2. FLEXERIL [Suspect]
     Indication: MUSCLE RELAXANT THERAPY
     Dosage: 10 MG PO TID
     Route: 048
     Dates: start: 20060918
  3. FLEXERIL [Concomitant]
  4. PRILOSEC [Concomitant]
  5. COMPAZINE [Concomitant]
  6. CHANTIX [Concomitant]

REACTIONS (1)
  - SEROTONIN SYNDROME [None]
